FAERS Safety Report 10071012 (Version 2)
Quarter: 2014Q2

REPORT INFORMATION
  Report Type: Report from Study
  Country: US (occurrence: US)
  Receive Date: 20140410
  Receipt Date: 20140508
  Transmission Date: 20141212
  Serious: Yes (Other)
  Sender: FDA-Public Use
  Company Number: PHEH2014US007080

PATIENT
  Age: 23 Year
  Sex: Female
  Weight: 68.5 kg

DRUGS (2)
  1. GILENYA [Suspect]
     Indication: RELAPSING-REMITTING MULTIPLE SCLEROSIS
     Dosage: 0.5 MG, QD
     Route: 048
     Dates: start: 20120315
  2. ERGOCALCIFEROL [Concomitant]
     Dosage: 1 DF, QW
     Route: 048

REACTIONS (23)
  - Coma [Recovered/Resolved]
  - VIIth nerve paralysis [Unknown]
  - Blood pressure decreased [Unknown]
  - Chest pain [Unknown]
  - Dry mouth [Unknown]
  - Multiple sclerosis relapse [Recovered/Resolved]
  - Nausea [Unknown]
  - Vomiting [Unknown]
  - Diplopia [Recovered/Resolved]
  - Dysarthria [Unknown]
  - Balance disorder [Unknown]
  - Gait disturbance [Unknown]
  - Central nervous system lesion [Unknown]
  - Paraesthesia [Unknown]
  - Back pain [Unknown]
  - Hypoaesthesia [Recovered/Resolved]
  - Cerebellar syndrome [Unknown]
  - Memory impairment [Unknown]
  - Muscular weakness [Unknown]
  - Micturition urgency [Unknown]
  - Nocturia [Unknown]
  - Headache [Unknown]
  - Diarrhoea [Unknown]
